FAERS Safety Report 8770347 (Version 1)
Quarter: 2012Q4

REPORT INFORMATION
  Report Type: 
  Country: CO (occurrence: CO)
  Receive Date: 20120906
  Receipt Date: 20120906
  Transmission Date: 20130627
  Serious: Yes (Other)
  Sender: FDA-Public Use
  Company Number: PHHY2012CO076245

PATIENT
  Age: 21 Year
  Sex: Female

DRUGS (6)
  1. CAFERGOT [Suspect]
     Indication: MIGRAINE
     Dosage: 2 DF (1 mg ergo and 100 mg caff), UNK
  2. NITROGLYCERIN [Concomitant]
  3. DILTIAZEM [Concomitant]
  4. MORPHINE [Concomitant]
  5. BUPIVACAINE [Concomitant]
  6. CRYSTALLOIDS [Concomitant]

REACTIONS (9)
  - Ergot poisoning [Unknown]
  - Peripheral arterial occlusive disease [Unknown]
  - Ischaemia [Unknown]
  - Pain in extremity [Recovered/Resolved]
  - Cyanosis [Unknown]
  - Paraesthesia [Unknown]
  - Feeling hot [Unknown]
  - Gait disturbance [Unknown]
  - Pulse absent [Unknown]
